FAERS Safety Report 10578641 (Version 2)
Quarter: 2014Q4

REPORT INFORMATION
  Report Type: Spontaneous
  Country: EE (occurrence: EE)
  Receive Date: 20141112
  Receipt Date: 20141203
  Transmission Date: 20150529
  Serious: Yes (Other)
  Sender: FDA-Public Use
  Company Number: EE-ROCHE-1489821

PATIENT
  Age: 18 Year
  Sex: Female

DRUGS (6)
  1. SIMPONI ARIA [Concomitant]
     Active Substance: GOLIMUMAB
  2. FOLIC ACID. [Concomitant]
     Active Substance: FOLIC ACID
  3. ROACTEMRA [Suspect]
     Active Substance: TOCILIZUMAB
     Indication: JUVENILE IDIOPATHIC ARTHRITIS
     Dosage: SOLUTION FOR INJECTION
     Route: 058
     Dates: start: 20141001, end: 20141008
  4. METHOTREXATE [Concomitant]
     Active Substance: METHOTREXATE
     Route: 065
  5. CODEINE [Concomitant]
     Active Substance: CODEINE
  6. PARACETAMOL [Concomitant]
     Active Substance: ACETAMINOPHEN

REACTIONS (6)
  - Initial insomnia [Recovered/Resolved]
  - Dizziness [Recovered/Resolved]
  - Syncope [Recovered/Resolved]
  - Asthenia [Recovered/Resolved]
  - Agitation [Recovered/Resolved]
  - Fatigue [Recovered/Resolved]

NARRATIVE: CASE EVENT DATE: 20141001
